FAERS Safety Report 10050922 (Version 1)
Quarter: 2014Q2

REPORT INFORMATION
  Report Type: Spontaneous
  Country: US (occurrence: US)
  Receive Date: 20140401
  Receipt Date: 20140401
  Transmission Date: 20141212
  Serious: Yes (Other)
  Sender: FDA-Public Use
  Company Number: US-GLAXOSMITHKLINE-A1066709A

PATIENT
  Age: 61 Year
  Sex: Male

DRUGS (7)
  1. ADVAIR [Suspect]
     Indication: CHRONIC OBSTRUCTIVE PULMONARY DISEASE
     Route: 055
     Dates: start: 2006
  2. UNSPECIFIED INGREDIENTS [Suspect]
     Indication: GLAUCOMA
     Route: 047
  3. Z PACK [Concomitant]
  4. INFLUENZA VACCINE [Concomitant]
  5. DORZOLAMIDE HYDROCHLORIDE [Concomitant]
  6. LATANOPROST [Concomitant]
  7. FLUTICASONE NASAL SPRAY [Concomitant]

REACTIONS (3)
  - Glaucoma [Not Recovered/Not Resolved]
  - Blindness unilateral [Not Recovered/Not Resolved]
  - Ocular hyperaemia [Not Recovered/Not Resolved]
